FAERS Safety Report 7282124-7 (Version None)
Quarter: 2011Q1

REPORT INFORMATION
  Report Type: 
  Country: None (occurrence: None)
  Receive Date: 20110208
  Receipt Date: 20110131
  Transmission Date: 20110831
  Serious: Yes (Life-Threatening, Hospitalization)
  Sender: FDA-Public Use
  Company Number: US-GILEAD-2010-0033911

PATIENT
  Sex: Male
  Weight: 63.56 kg

DRUGS (14)
  1. POTASSIUM CHLORIDE [Concomitant]
  2. NITROGLYCERIN [Concomitant]
  3. PROAIR HFA [Concomitant]
  4. LASIX [Concomitant]
  5. ENALAPRIL MALEATE AND HYDROCHLOROTHIAZIDE [Concomitant]
  6. SYMBICORT [Concomitant]
  7. DEXILANT [Concomitant]
  8. PREDNISOLONE [Concomitant]
  9. AMPICILLIN [Concomitant]
  10. CLONAZEPAM [Concomitant]
  11. LETAIRIS [Suspect]
     Indication: PULMONARY ARTERIAL HYPERTENSION
     Route: 048
     Dates: start: 20101118
  12. SYNTHROID [Concomitant]
  13. SPIRIVA [Concomitant]
  14. MUCINEX [Concomitant]

REACTIONS (2)
  - HYPOKALAEMIA [None]
  - HYPONATRAEMIA [None]
